FAERS Safety Report 5525459-8 (Version None)
Quarter: 2007Q4

REPORT INFORMATION
  Report Type: 
  Country: None (occurrence: None)
  Receive Date: 20071119
  Receipt Date: 20071102
  Transmission Date: 20080405
  Serious: Yes (Hospitalization)
  Sender: FDA-Public Use
  Company Number: S07-FRA-05912-01

PATIENT
  Age: 58 Year
  Sex: Male

DRUGS (7)
  1. CITALOPRAM HYDROBROMIDE [Suspect]
     Dosage: 20 MG QD PO
     Route: 048
  2. PREVISCAN (FLUINDIONE) [Suspect]
     Indication: PHLEBITIS
     Dosage: 20 MG BID PO
     Route: 048
     Dates: start: 20070901, end: 20070917
  3. PREVISCAN (FLUINDIONE) [Suspect]
     Indication: PHLEBITIS
     Dosage: 20 MG QD PO
     Route: 048
     Dates: start: 20070903, end: 20070917
  4. FENOFIBRATE [Suspect]
     Dosage: 300 MG QD PO
     Route: 048
  5. TAREG (VALSARTAN) [Concomitant]
  6. SPIROCTAN (SPIRONOLACTONE) [Concomitant]
  7. METFORMINE ^MERCK^ (METFORMIN HYDROCHLORIDE) [Concomitant]

REACTIONS (6)
  - ABDOMINAL PAIN [None]
  - INCORRECT DOSE ADMINISTERED [None]
  - INTERNATIONAL NORMALISED RATIO INCREASED [None]
  - INTRA-ABDOMINAL HAEMORRHAGE [None]
  - MEDICATION ERROR [None]
  - MUSCLE HAEMORRHAGE [None]
